FAERS Safety Report 6859639-6 (Version None)
Quarter: 2010Q3

REPORT INFORMATION
  Report Type: 
  Country: None (occurrence: None)
  Receive Date: 20100719
  Receipt Date: 20100119
  Transmission Date: 20110219
  Serious: No
  Sender: FDA-Public Use
  Company Number: US-PFIZER INC-2008011966

PATIENT
  Sex: Female
  Weight: 63.5 kg

DRUGS (14)
  1. CHANTIX [Suspect]
     Indication: SMOKING CESSATION THERAPY
     Dosage: UNK
     Route: 048
     Dates: start: 20061101, end: 20070101
  2. CHANTIX [Suspect]
     Dosage: 0.5 MG, 1X/DAY
     Dates: start: 20080101
  3. CHANTIX [Suspect]
     Dosage: 0.5 MG/DAY
     Route: 048
     Dates: start: 20100117
  4. ALLEGRA [Concomitant]
  5. HYDROCHLOROTHIAZIDE [Concomitant]
  6. VITAMIN C [Concomitant]
  7. PAXIL [Concomitant]
     Indication: DEPRESSION
     Dosage: 20 MG, UNK
  8. PAXIL [Concomitant]
     Dosage: 20 MG, UNK
  9. KLONOPIN [Concomitant]
  10. AMBIEN [Concomitant]
  11. ZESTRIL [Concomitant]
     Indication: HYPERTENSION
     Dosage: 10 MG/DAY
     Route: 048
  12. BENTYL [Concomitant]
     Indication: IRRITABLE BOWEL SYNDROME
     Dosage: 20 MG/DAY
     Route: 048
  13. VITACAL [Concomitant]
     Indication: BONE DISORDER
     Dosage: UNK
     Route: 048
  14. ZOLPIDEM TARTRATE [Concomitant]
     Indication: SLEEP DISORDER
     Dosage: 12.5 MG, UNK

REACTIONS (2)
  - CONSTIPATION [None]
  - INSOMNIA [None]
